FAERS Safety Report 21813397 (Version 3)
Quarter: 2023Q1

REPORT INFORMATION
  Report Type: Spontaneous
  Country: US (occurrence: US)
  Receive Date: 20230103
  Receipt Date: 20230124
  Transmission Date: 20230418
  Serious: No
  Sender: FDA-Public Use
  Company Number: US-ALKERMES INC.-ALK-2022-006189

PATIENT
  Sex: Male

DRUGS (3)
  1. ARISTADA [Suspect]
     Active Substance: ARIPIPRAZOLE LAUROXIL
     Indication: Product used for unknown indication
     Dosage: 441 MILLIGRAM, QMO
     Route: 030
     Dates: start: 20221202
  2. ARISTADA [Suspect]
     Active Substance: ARIPIPRAZOLE LAUROXIL
     Dosage: 441 MILLIGRAM, QMO
     Route: 030
     Dates: start: 20221028, end: 20221028
  3. ARISTADA [Suspect]
     Active Substance: ARIPIPRAZOLE LAUROXIL
     Dosage: 441 MILLIGRAM, QMO
     Route: 030
     Dates: start: 20220930, end: 20220930

REACTIONS (2)
  - Needle issue [Recovered/Resolved]
  - Wrong technique in device usage process [Recovered/Resolved]

NARRATIVE: CASE EVENT DATE: 20220101
